FAERS Safety Report 8773337 (Version 2)
Quarter: 2013Q4

REPORT INFORMATION
  Report Type: Spontaneous
  Country: US (occurrence: US)
  Receive Date: 20120907
  Receipt Date: 20131101
  Transmission Date: 20140711
  Serious: No
  Sender: FDA-Public Use
  Company Number: US-009507513-1208USA003485

PATIENT
  Sex: Male

DRUGS (3)
  1. PEGINTRON [Suspect]
     Indication: HEPATITIS C
     Dosage: REDIPEN
     Dates: start: 20120623
  2. REBETOL [Suspect]
     Indication: HEPATITIS C
     Dosage: UNK
     Dates: start: 20120623
  3. TELAPREVIR [Concomitant]
     Indication: HEPATITIS C
     Dosage: UNK
     Dates: start: 20120623

REACTIONS (19)
  - Rash generalised [Unknown]
  - Decreased appetite [Unknown]
  - Dysgeusia [Unknown]
  - Dizziness [Unknown]
  - Weight decreased [Unknown]
  - Nausea [Unknown]
  - Fatigue [Unknown]
  - Headache [Unknown]
  - Dysgeusia [Unknown]
  - Vision blurred [Unknown]
  - Photophobia [Unknown]
  - Hypersomnia [Unknown]
  - Emotional disorder [Unknown]
  - Memory impairment [Unknown]
  - Feeling cold [Unknown]
  - Hypotension [Unknown]
  - Weight decreased [Unknown]
  - Decreased appetite [Unknown]
  - Dizziness [Unknown]
